FAERS Safety Report 19067089 (Version 1)
Quarter: 2021Q1

REPORT INFORMATION
  Report Type: Spontaneous
  Country: US (occurrence: US)
  Receive Date: 20210329
  Receipt Date: 20210329
  Transmission Date: 20210420
  Serious: Yes (Other)
  Sender: FDA-Public Use
  Company Number: US-BRISTOL-MYERS SQUIBB COMPANY-BMS-2021-028824

PATIENT
  Age: 81 Year
  Sex: Female
  Weight: 61.23 kg

DRUGS (19)
  1. ELIQUIS [Suspect]
     Active Substance: APIXABAN
     Dosage: 2.5 MILLIGRAM, BID
     Route: 065
     Dates: end: 20210129
  2. PANTOPRAZOLE [Concomitant]
     Active Substance: PANTOPRAZOLE
     Indication: ULCER
     Dosage: 40 MILLIGRAM, QD, EVERY MORNING
     Route: 048
     Dates: start: 201911
  3. FISH OIL [Concomitant]
     Active Substance: FISH OIL
     Indication: BLOOD CHOLESTEROL
     Dosage: 1000 MILLIGRAM, QD
     Route: 048
  4. ALLEGRA [Concomitant]
     Active Substance: FEXOFENADINE HYDROCHLORIDE
     Indication: PRODUCT USED FOR UNKNOWN INDICATION
     Dosage: AS NEEDED
     Route: 065
  5. BABY ASPIRIN [Suspect]
     Active Substance: ASPIRIN
     Indication: THROMBOSIS PROPHYLAXIS
     Dosage: 81 MILLIGRAM,DAILY
     Route: 048
  6. ZOCOR [Concomitant]
     Active Substance: SIMVASTATIN
     Indication: CONSTIPATION
  7. VITAMIN B12 [COBAMAMIDE] [Concomitant]
     Active Substance: COBAMAMIDE
     Indication: HYPOAESTHESIA
     Dosage: 1000 MICROGRAM, QD,EVERY EVENING
     Route: 048
  8. ONGLYZA [SAXAGLIPTIN] [Concomitant]
     Indication: DIABETES MELLITUS
     Dosage: 5 MILLIGRAM,DAILY
     Route: 048
     Dates: start: 2016
  9. MIRALAX [Concomitant]
     Active Substance: POLYETHYLENE GLYCOL 3350
     Indication: PRODUCT USED FOR UNKNOWN INDICATION
     Dosage: 17 MILLIGRAM,EVERY DAY, DISSOLVED IN A GLASS OF WATER
     Route: 048
     Dates: start: 2019
  10. METFORMIN [Concomitant]
     Active Substance: METFORMIN HYDROCHLORIDE
     Indication: PRODUCT USED FOR UNKNOWN INDICATION
     Route: 065
  11. ATORVASTATIN [Concomitant]
     Active Substance: ATORVASTATIN
     Indication: BLOOD CHOLESTEROL
     Dosage: 10 MILLIGRAM, QD, EVENING
     Route: 048
  12. VITAMIN D3 [Concomitant]
     Active Substance: CHOLECALCIFEROL
     Indication: PRODUCT USED FOR UNKNOWN INDICATION
     Dosage: 1000 INTERNATIONAL UNIT,DAILY
     Route: 048
  13. ZOCOR [Concomitant]
     Active Substance: SIMVASTATIN
     Indication: MUSCLE SPASMS
     Dosage: 40 MILLIGRAM
     Route: 065
  14. COENZYME Q10 [Concomitant]
     Active Substance: DIETARY SUPPLEMENT\UBIDECARENONE
     Indication: PRODUCT USED FOR UNKNOWN INDICATION
     Dosage: 100 MILLIGRAM,DAILY
     Route: 065
  15. ELIQUIS [Suspect]
     Active Substance: APIXABAN
     Dosage: 2.5 MILLIGRAM, BID
     Route: 065
  16. ZOCOR [Concomitant]
     Active Substance: SIMVASTATIN
     Indication: ABDOMINAL PAIN UPPER
     Dosage: 20 MILLIGRAM
     Route: 065
  17. BIOTIN [Concomitant]
     Active Substance: BIOTIN
     Indication: NAIL DISORDER
     Dosage: 5000 MICROGRAM,DAILY
     Route: 048
     Dates: start: 2016
  18. ELIQUIS [Suspect]
     Active Substance: APIXABAN
     Indication: CEREBROVASCULAR ACCIDENT PROPHYLAXIS
     Dosage: 5 MILLIGRAM, BID
     Route: 065
     Dates: start: 2018
  19. ELIQUIS [Suspect]
     Active Substance: APIXABAN
     Dosage: 5MG IN THE MORNING AND 2.5MG
     Route: 065

REACTIONS (10)
  - Gastrointestinal haemorrhage [Unknown]
  - COVID-19 [Unknown]
  - Intentional product misuse [Unknown]
  - Large intestine polyp [Unknown]
  - Anaemia [Unknown]
  - Haemarthrosis [Recovered/Resolved]
  - Ulcer haemorrhage [Unknown]
  - Rectal haemorrhage [Unknown]
  - Hypoaesthesia [Unknown]
  - Intentional product use issue [Unknown]

NARRATIVE: CASE EVENT DATE: 2020
